FAERS Safety Report 19840463 (Version 1)
Quarter: 2021Q3

REPORT INFORMATION
  Report Type: Spontaneous
  Country: HU (occurrence: HU)
  Receive Date: 20210915
  Receipt Date: 20210915
  Transmission Date: 20211014
  Serious: Yes (Other)
  Sender: FDA-Public Use
  Company Number: HU-B.I. PHARMACEUTICALS,INC./RIDGEFIELD-2021-BI-126021

PATIENT

DRUGS (3)
  1. OXYGEN. [Concomitant]
     Active Substance: OXYGEN
     Indication: PLEUROPARENCHYMAL FIBROELASTOSIS
     Dates: start: 2018
  2. OFEV [Suspect]
     Active Substance: NINTEDANIB
     Indication: PLEUROPARENCHYMAL FIBROELASTOSIS
     Dates: start: 2018, end: 2019
  3. METHYLPREDNISOLONE. [Concomitant]
     Active Substance: METHYLPREDNISOLONE
     Indication: PLEUROPARENCHYMAL FIBROELASTOSIS
     Dates: start: 2018

REACTIONS (4)
  - Weight decreased [Unknown]
  - Abdominal discomfort [Unknown]
  - Off label use [Recovered/Resolved]
  - Pleuroparenchymal fibroelastosis [Not Recovered/Not Resolved]

NARRATIVE: CASE EVENT DATE: 2018
